FAERS Safety Report 25537221 (Version 2)
Quarter: 2025Q3

REPORT INFORMATION
  Report Type: Spontaneous
  Country: JP (occurrence: JP)
  Receive Date: 20250710
  Receipt Date: 20250730
  Transmission Date: 20251021
  Serious: No
  Sender: BRISTOL-MYERS SQUIBB COMPANY
  Company Number: JP-BRISTOL-MYERS SQUIBB COMPANY-2025-093865

PATIENT
  Age: 82 Year
  Sex: Female

DRUGS (6)
  1. ELIQUIS [Suspect]
     Active Substance: APIXABAN
     Indication: Product used for unknown indication
     Dosage: VIA GASTRIC FISTULA
     Route: 050
  2. ELIQUIS [Suspect]
     Active Substance: APIXABAN
     Route: 050
  3. BISOPROLOL FUMARATE TOWA [Concomitant]
     Indication: Product used for unknown indication
     Dosage: CRUSHED FORM VIA GASTRIC FISTULA
     Route: 050
  4. MIYA-BM [Concomitant]
     Active Substance: CLOSTRIDIUM BUTYRICUM SPORES STRAIN M-55
     Indication: Product used for unknown indication
     Dosage: VIA GASTRIC FISTULA
     Route: 050
  5. MAGNESIUM OXIDE [Concomitant]
     Active Substance: MAGNESIUM OXIDE
     Indication: Product used for unknown indication
     Dosage: MARUISHI VIA GASTRIC FISTULA
     Route: 050
  6. SODIUM PICOSULFATE [Concomitant]
     Active Substance: SODIUM PICOSULFATE
     Indication: Constipation

REACTIONS (1)
  - Off label use [Unknown]
